FAERS Safety Report 12746448 (Version 1)
Quarter: 2016Q3

REPORT INFORMATION
  Report Type: Spontaneous
  Country: US (occurrence: US)
  Receive Date: 20160914
  Receipt Date: 20160914
  Transmission Date: 20161109
  Serious: No
  Sender: FDA-Public Use
  Company Number: None

PATIENT
  Sex: Male
  Weight: 64.41 kg

DRUGS (1)
  1. TEMOZOLOMIDE 250/5MG TEVA [Suspect]
     Active Substance: TEMOZOLOMIDE
     Indication: BRAIN NEOPLASM MALIGNANT
     Dosage: 250/5MG 260MG DAILY FOR 5 PO
     Route: 048
     Dates: start: 20160905

REACTIONS (7)
  - Nausea [None]
  - Confusional state [None]
  - Constipation [None]
  - Aggression [None]
  - Haemorrhoidal haemorrhage [None]
  - Mood altered [None]
  - Amnesia [None]
